FAERS Safety Report 26054838 (Version 1)
Quarter: 2025Q4

REPORT INFORMATION
  Report Type: Report from Study
  Country: US (occurrence: US)
  Receive Date: 20251117
  Receipt Date: 20251117
  Transmission Date: 20260118
  Serious: Yes (Hospitalization)
  Sender: ABBVIE
  Company Number: US-ABBVIE-6549860

PATIENT
  Age: 72 Year
  Sex: Male

DRUGS (2)
  1. VENCLEXTA [Suspect]
     Active Substance: VENETOCLAX
     Indication: Acute myeloid leukaemia
     Dosage: MISSED DOSE, LAST ADMIN DATE-2025, TAKING FOUR 100 MG ONCE DAILY
     Route: 048
     Dates: start: 20250213
  2. VENCLEXTA [Suspect]
     Active Substance: VENETOCLAX
     Indication: Acute myeloid leukaemia
     Dosage: TAKING FOUR 100 MG ONCE DAILY
     Route: 048
     Dates: start: 2025

REACTIONS (3)
  - Pulmonary thrombosis [Unknown]
  - Hospitalisation [Unknown]
  - Platelet count decreased [Unknown]

NARRATIVE: CASE EVENT DATE: 20250101
